FAERS Safety Report 6237512-4 (Version None)
Quarter: 2009Q2

REPORT INFORMATION
  Report Type: 
  Country: None (occurrence: None)
  Receive Date: 20090619
  Receipt Date: 20090306
  Transmission Date: 20091009
  Serious: No
  Sender: FDA-Public Use
  Company Number: US-AMGEN-KDL337218

PATIENT
  Sex: Female

DRUGS (2)
  1. ARANESP [Suspect]
     Indication: ANAEMIA OF MALIGNANT DISEASE
     Dates: start: 20090101, end: 20090306
  2. TAXOL [Concomitant]
     Dates: start: 20090102

REACTIONS (2)
  - BURNING SENSATION [None]
  - FEELING ABNORMAL [None]
